FAERS Safety Report 9393391 (Version 6)
Quarter: 2014Q1

REPORT INFORMATION
  Report Type: Report from Study
  Country: US (occurrence: US)
  Receive Date: 20130710
  Receipt Date: 20140326
  Transmission Date: 20141002
  Serious: No
  Sender: FDA-Public Use
  Company Number: PHEH2013US014400

PATIENT
  Age: 31 Year
  Sex: Male

DRUGS (8)
  1. TASIGNA [Suspect]
     Indication: LEUKAEMIA
     Dosage: 400 MG, BID
     Route: 048
     Dates: start: 20120608
  2. TASIGNA [Interacting]
     Dosage: 400 MG, BID
     Route: 048
     Dates: start: 20130105
  3. FLUTICASONE [Concomitant]
     Dosage: UNK UKN, UNK
  4. ADVAIR [Concomitant]
     Dosage: UNK UKN, UNK
  5. COMBIVENT [Concomitant]
     Dosage: UNK UKN, UNK
  6. CLONAZEPAM [Concomitant]
     Dosage: UNK UKN, UNK
  7. SEROQUEL [Concomitant]
     Dosage: UNK UKN, UNK
  8. DEPAKOTE [Concomitant]
     Dosage: UNK UKN, UNK

REACTIONS (3)
  - Drug interaction [Unknown]
  - Food interaction [Not Recovered/Not Resolved]
  - Therapeutic response decreased [Unknown]
